FAERS Safety Report 5064675-9 (Version None)
Quarter: 2006Q3

REPORT INFORMATION
  Report Type: 
  Country: None (occurrence: None)
  Receive Date: 20060728
  Receipt Date: 20060721
  Transmission Date: 20061208
  Serious: Yes (Other)
  Sender: FDA-Public Use
  Company Number: US-GLAXOSMITHKLINE-A0613112A

PATIENT
  Age: 53 Year
  Sex: Female

DRUGS (5)
  1. BUPROPION HCL [Suspect]
     Indication: DEPRESSION
     Dosage: 150MG TWICE PER DAY
     Route: 048
     Dates: start: 20060401
  2. TRAZODONE HCL [Concomitant]
  3. RED YEAST RICE [Concomitant]
  4. COENZYME Q10 [Concomitant]
  5. ZANTAC [Concomitant]

REACTIONS (3)
  - AGITATION [None]
  - DEMENTIA [None]
  - DEPRESSION [None]
